FAERS Safety Report 8183381-5 (Version None)
Quarter: 2012Q1

REPORT INFORMATION
  Report Type: 
  Country: None (occurrence: None)
  Receive Date: 20120305
  Receipt Date: 20120229
  Transmission Date: 20120608
  Serious: Yes (Death, Other)
  Sender: FDA-Public Use
  Company Number: TW-SANOFI-AVENTIS-2012SA013392

PATIENT
  Age: 27 Year
  Sex: Male

DRUGS (16)
  1. AMLODIPINE/VALSARTAN [Concomitant]
     Dosage: DOSE:1 UNIT(S)
     Route: 065
  2. SPIRONOLACTONE [Concomitant]
     Route: 065
  3. ALPRAZOLAM [Concomitant]
     Route: 065
  4. MORPHINE HYDROCHLORIDE [Concomitant]
     Route: 065
  5. PREDNISOLONE [Concomitant]
     Route: 065
  6. DIPHENHYDRAMINE HCL [Concomitant]
     Route: 065
  7. TENOFOVIR [Concomitant]
     Route: 065
  8. ULTRACET [Concomitant]
     Dosage: DOSE:1 UNIT(S)
     Route: 065
  9. MOSAPRIDE CITRATE [Concomitant]
     Route: 065
  10. PROCHLORPERAZINE [Concomitant]
     Route: 065
  11. THYMIDINE [Concomitant]
     Route: 065
  12. FUROSEMIDE [Concomitant]
     Route: 065
  13. MEGESTROL ACETATE [Concomitant]
     Route: 048
  14. ELOXATIN [Suspect]
     Route: 042
     Dates: start: 20111216, end: 20120201
  15. GEMCITABINE [Suspect]
     Route: 042
     Dates: start: 20111216, end: 20120201
  16. CIMETIDINE [Concomitant]
     Route: 065

REACTIONS (2)
  - RENAL FAILURE ACUTE [None]
  - SEPTIC SHOCK [None]
